FAERS Safety Report 9621288 (Version 2)
Quarter: 2013Q4

REPORT INFORMATION
  Report Type: Spontaneous
  Country: DE (occurrence: DE)
  Receive Date: 20131015
  Receipt Date: 20131015
  Transmission Date: 20140711
  Serious: Yes (Death, Life-Threatening, Hospitalization, Disabling)
  Sender: FDA-Public Use
  Company Number: DE-JNJFOC-20130611054

PATIENT
  Age: 89 Year
  Sex: Female
  Weight: 59 kg

DRUGS (9)
  1. XARELTO [Suspect]
     Indication: CEREBROVASCULAR ACCIDENT PROPHYLAXIS
     Route: 048
     Dates: start: 20120410, end: 20130415
  2. XARELTO [Suspect]
     Indication: ATRIAL FIBRILLATION
     Route: 048
     Dates: start: 20120410, end: 20130415
  3. CONCOR [Concomitant]
     Route: 065
  4. ACTRAPID [Concomitant]
     Indication: DIABETES MELLITUS
     Route: 058
  5. SIMVAHEXAL [Concomitant]
     Route: 065
  6. AMLODIPINE [Concomitant]
     Route: 065
  7. INSULIN H BASAL [Concomitant]
     Indication: DIABETES MELLITUS
     Route: 065
  8. ATACAND [Concomitant]
     Route: 065
  9. TOLTERODINE [Concomitant]
     Route: 065

REACTIONS (2)
  - Subdural haematoma [Fatal]
  - Fall [Fatal]
